FAERS Safety Report 4789709-8 (Version None)
Quarter: 2005Q4

REPORT INFORMATION
  Report Type: 
  Country: None (occurrence: None)
  Receive Date: 20051005
  Receipt Date: 20051005
  Transmission Date: 20060501
  Serious: Yes (Hospitalization, Other)
  Sender: FDA-Public Use
  Company Number: None

PATIENT
  Sex: Male
  Weight: 93 kg

DRUGS (3)
  1. INTERERFERON-ALPHA [Suspect]
     Indication: RENAL CELL CARCINOMA STAGE UNSPECIFIED
     Dosage: SEE IMAGE
     Route: 058
     Dates: start: 20050401
  2. INTERERFERON-ALPHA [Suspect]
     Indication: RENAL CELL CARCINOMA STAGE UNSPECIFIED
     Dosage: SEE IMAGE
     Route: 058
     Dates: start: 20050420
  3. COZAAR [Concomitant]

REACTIONS (14)
  - BLOOD CULTURE POSITIVE [None]
  - CARDIOMYOPATHY [None]
  - DIALYSIS [None]
  - DISEASE RECURRENCE [None]
  - DYSPNOEA [None]
  - FLUID OVERLOAD [None]
  - HYPERTENSION [None]
  - LUNG INFILTRATION [None]
  - NAUSEA [None]
  - PNEUMONIA [None]
  - PYREXIA [None]
  - RENAL DISORDER [None]
  - STAPHYLOCOCCAL INFECTION [None]
  - VOMITING [None]
